FAERS Safety Report 9823279 (Version 2)
Quarter: 2014Q1

REPORT INFORMATION
  Report Type: Report from Study
  Country: US (occurrence: US)
  Receive Date: 20140116
  Receipt Date: 20140307
  Transmission Date: 20141002
  Serious: Yes (Hospitalization)
  Sender: FDA-Public Use
  Company Number: US-ABBVIE-14P-163-1188264-00

PATIENT
  Age: 20 Year
  Sex: Male
  Weight: 98.06 kg

DRUGS (7)
  1. HUMIRA [Suspect]
     Indication: CROHN^S DISEASE
     Dates: start: 20131120, end: 20140102
  2. HUMIRA [Suspect]
     Dates: start: 20140225
  3. HALDOL [Concomitant]
     Indication: ANXIETY
  4. HALDOL [Concomitant]
     Indication: SCHIZOPHRENIA
  5. BENZTROPINE [Concomitant]
     Indication: ADVERSE DRUG REACTION
  6. ZOLOFT [Concomitant]
     Indication: ANXIETY
  7. PREDNISONE [Concomitant]
     Indication: PRODUCT USED FOR UNKNOWN INDICATION

REACTIONS (6)
  - Anal fistula [Unknown]
  - Rectal abscess [Not Recovered/Not Resolved]
  - Anal abscess [Unknown]
  - Injection site pain [Not Recovered/Not Resolved]
  - Pain [Unknown]
  - Crohn^s disease [Unknown]
